FAERS Safety Report 8403978-4 (Version None)
Quarter: 2012Q2

REPORT INFORMATION
  Report Type: 
  Country: None (occurrence: None)
  Receive Date: 20120601
  Receipt Date: 20110929
  Transmission Date: 20120825
  Serious: No
  Sender: FDA-Public Use
  Company Number: US-NOVEN-11US003332

PATIENT
  Age: 8 Year
  Sex: Male
  Weight: 26.757 kg

DRUGS (2)
  1. DAYTRANA [Suspect]
     Dosage: 10 MG, QD
     Route: 062
     Dates: start: 20100101, end: 20110101
  2. DAYTRANA [Suspect]
     Indication: ATTENTION DEFICIT/HYPERACTIVITY DISORDER
     Dosage: 15 MG, 9.5 HOURS DAILY
     Route: 062
     Dates: start: 20110101, end: 20110101

REACTIONS (4)
  - STARING [None]
  - SPEECH DISORDER [None]
  - INCORRECT DRUG ADMINISTRATION DURATION [None]
  - CATATONIA [None]
